FAERS Safety Report 14523290 (Version 1)
Quarter: 2018Q1

REPORT INFORMATION
  Report Type: Spontaneous
  Country: US (occurrence: US)
  Receive Date: 20180212
  Receipt Date: 20180212
  Transmission Date: 20180509
  Serious: No
  Sender: FDA-Public Use
  Company Number: US-AMAG PHARMACEUTICALS, INC.-AMAG201700656

PATIENT

DRUGS (3)
  1. MAKENA [Suspect]
     Active Substance: HYDROXYPROGESTERONE CAPROATE
     Indication: PREMATURE DELIVERY
     Dosage: 250 MG, WEEKLY
     Route: 030
     Dates: start: 20170124
  2. PRENATAL VITAMINS/IRON [Concomitant]
     Dosage: 800 MG, UNK
  3. PRENATAL VITAMINS/IRON [Concomitant]
     Indication: PRODUCT USED FOR UNKNOWN INDICATION
     Dosage: 28 MG, UNK
     Route: 065

REACTIONS (4)
  - Medication error [Unknown]
  - Fatigue [Not Recovered/Not Resolved]
  - Jaundice [Not Recovered/Not Resolved]
  - Night sweats [Not Recovered/Not Resolved]

NARRATIVE: CASE EVENT DATE: 20170124
